FAERS Safety Report 5635782-4 (Version None)
Quarter: 2008Q1

REPORT INFORMATION
  Report Type: 
  Country: None (occurrence: None)
  Receive Date: 20080221
  Receipt Date: 20080211
  Transmission Date: 20080703
  Serious: Yes (Hospitalization)
  Sender: FDA-Public Use
  Company Number: L08-IRN-00575-01

PATIENT
  Age: 11 Year
  Sex: Male

DRUGS (1)
  1. CARBAMAZEPINE [Suspect]
     Indication: CONVULSION

REACTIONS (3)
  - ANGIOEDEMA [None]
  - ARTHRALGIA [None]
  - SERUM SICKNESS [None]
